FAERS Safety Report 23032814 (Version 2)
Quarter: 2023Q4

REPORT INFORMATION
  Report Type: Spontaneous
  Country: US (occurrence: US)
  Receive Date: 20231005
  Receipt Date: 20231030
  Transmission Date: 20240110
  Serious: Yes (Death, Other)
  Sender: FDA-Public Use
  Company Number: US-MYLANLABS-2023M1091114

PATIENT
  Age: 54 Year
  Sex: Female

DRUGS (1)
  1. DILANTIN [Suspect]
     Active Substance: PHENYTOIN
     Indication: Seizure
     Dosage: UNK
     Route: 065

REACTIONS (2)
  - Hepatic failure [Fatal]
  - Adverse drug reaction [Unknown]

NARRATIVE: CASE EVENT DATE: 20230915
